FAERS Safety Report 10191171 (Version 2)
Quarter: 2014Q2

REPORT INFORMATION
  Report Type: Report from Study
  Country: JP (occurrence: JP)
  Receive Date: 20140523
  Receipt Date: 20140523
  Transmission Date: 20141212
  Serious: Yes (Hospitalization)
  Sender: FDA-Public Use
  Company Number: JP-PFIZER INC-2011180634

PATIENT
  Age: 52 Year
  Sex: Male
  Weight: 66.7 kg

DRUGS (16)
  1. AXITINIB [Suspect]
     Indication: HEPATOCELLULAR CARCINOMA
     Dosage: 5 MG, 2X/DAY
     Route: 048
     Dates: start: 20110610, end: 20110816
  2. AMLODIN [Concomitant]
     Indication: HYPERTENSION
     Dosage: 5 MG, 1X/DAY
     Route: 048
     Dates: start: 20110325, end: 20120124
  3. OLMETEC [Concomitant]
     Indication: HYPERTENSION
     Dosage: 40 MG, 1X/DAY
     Route: 048
     Dates: start: 20110616, end: 20110818
  4. ENTECAVIR [Concomitant]
     Indication: HEPATIC CIRRHOSIS
     Dosage: 0.5 MG, 1X/DAY
     Route: 048
     Dates: start: 201103, end: 20120110
  5. PARIET [Concomitant]
     Indication: GASTRITIS
     Dosage: 10 MG, 1X/DAY
     Route: 048
     Dates: start: 20110325, end: 20110816
  6. AMINOLEBAN EN [Concomitant]
     Indication: HEPATIC CIRRHOSIS
     Dosage: 50 G, 1X/DAY
     Route: 048
     Dates: start: 20110325, end: 20111102
  7. UREPEARL [Concomitant]
     Indication: PROPHYLAXIS
     Dosage: UNK
     Route: 061
     Dates: start: 20110408
  8. POSTERISAN FORTE [Concomitant]
     Indication: ANAL FISSURE
     Dosage: UNK
     Route: 061
     Dates: start: 20110721, end: 20110808
  9. PRIMPERAN [Concomitant]
     Indication: NAUSEA
     Dosage: 15 MG, 3X/DAY
     Route: 048
     Dates: start: 20110614
  10. THYRADIN S [Concomitant]
     Indication: HYPERTHYROIDISM
     Dosage: 50 MG, 1X/DAY
     Route: 048
     Dates: start: 20110623
  11. LOPEMIN [Concomitant]
     Indication: DIARRHOEA
     Dosage: 2 MG, 2X/DAY
     Route: 048
     Dates: start: 20110721
  12. VOLTAREN - SLOW RELEASE ^NOVARTIS^ [Concomitant]
     Indication: PAIN
     Dosage: 75 MG, 2X/DAY
     Route: 048
     Dates: end: 20110830
  13. CODEINE PHOSPHATE [Concomitant]
     Indication: COUGH
     Dosage: 1.6 G, 4X/DAY
     Route: 048
     Dates: start: 20110707, end: 20110929
  14. BIOFERMIN [Concomitant]
     Indication: DIARRHOEA
     Dosage: 3 G, 3X/DAY
     Route: 048
     Dates: start: 20110721
  15. OXYCONTIN [Concomitant]
     Indication: PAIN
     Dosage: 10 MG, 2X/DAY
     Route: 048
     Dates: start: 20110721, end: 20110913
  16. OXINORM [Concomitant]
     Indication: PAIN
     Dosage: 2.5 MG, AS NEEDED
     Route: 048
     Dates: start: 20110721, end: 20110913

REACTIONS (1)
  - Gastric ulcer [Not Recovered/Not Resolved]
